FAERS Safety Report 8473442-5 (Version None)
Quarter: 2012Q2

REPORT INFORMATION
  Report Type: 
  Country: None (occurrence: None)
  Receive Date: 20120628
  Receipt Date: 20120615
  Transmission Date: 20120825
  Serious: Yes (Hospitalization, Disabling)
  Sender: FDA-Public Use
  Company Number: US-ELI_LILLY_AND_COMPANY-US201206005945

PATIENT
  Sex: Female

DRUGS (5)
  1. HUMULIN N [Suspect]
     Indication: TYPE 2 DIABETES MELLITUS
     Dosage: 59 IU, UNKNOWN
  2. ONGLYZA [Concomitant]
     Indication: TYPE 2 DIABETES MELLITUS
     Dosage: UNK
     Dates: start: 20110601
  3. ASPIRIN [Concomitant]
     Dosage: UNK
     Dates: start: 20110901
  4. HUMULIN N [Suspect]
     Dosage: 55 IU, UNKNOWN
     Dates: start: 20120328, end: 20120328
  5. METFORMIN HCL [Concomitant]
     Indication: TYPE 2 DIABETES MELLITUS
     Dosage: 500 MG/KG, UNKNOWN

REACTIONS (4)
  - ABASIA [None]
  - HYPOGLYCAEMIA [None]
  - PAIN IN EXTREMITY [None]
  - BURNING SENSATION [None]
